FAERS Safety Report 8095018-4 (Version None)
Quarter: 2012Q1

REPORT INFORMATION
  Report Type: 
  Country: None (occurrence: None)
  Receive Date: 20120131
  Receipt Date: 20120131
  Transmission Date: 20120608
  Serious: Yes (Life-Threatening, Hospitalization, Disabling)
  Sender: FDA-Public Use
  Company Number: None

PATIENT
  Age: 75 Year
  Sex: Male
  Weight: 91 kg

DRUGS (1)
  1. TENECTEPLASE [Suspect]
     Indication: MYOCARDIAL INFARCTION
     Dosage: 30 MG
     Route: 042
     Dates: start: 20120125, end: 20120125

REACTIONS (3)
  - CEREBRAL HAEMORRHAGE [None]
  - MYOCARDIAL INFARCTION [None]
  - BRAIN HERNIATION [None]
